FAERS Safety Report 4480948-2 (Version None)
Quarter: 2004Q4

REPORT INFORMATION
  Report Type: 
  Country: None (occurrence: None)
  Receive Date: 20041021
  Receipt Date: 20040921
  Transmission Date: 20050328
  Serious: Yes (Hospitalization)
  Sender: FDA-Public Use
  Company Number: 200417213US

PATIENT
  Sex: Female

DRUGS (11)
  1. KETEK [Suspect]
     Indication: BRONCHITIS ACUTE
     Dates: start: 20040917, end: 20040921
  2. TOPROL-XL [Concomitant]
     Dosage: DOSE: UNK
  3. ASPIRIN [Concomitant]
     Dosage: DOSE: UNK
  4. LIPITOR [Concomitant]
     Dosage: DOSE: UNK
  5. PRILOSEC [Concomitant]
     Dosage: DOSE: UNK
  6. ZESTRIL [Concomitant]
     Dosage: DOSE: UNK
  7. BENICAR                                 /USA/ [Concomitant]
  8. OPHTHALMOLOGICALS [Concomitant]
     Dosage: DOSE: UNK
  9. PREDNISONE [Concomitant]
     Dosage: DOSE: UNK
  10. ALBUTEROL [Concomitant]
     Dosage: DOSE: UNK
  11. IPRATROPIUM BROMIDE [Concomitant]
     Dosage: DOSE: UNK

REACTIONS (1)
  - CONVULSION [None]
